FAERS Safety Report 24265622 (Version 1)
Quarter: 2024Q3

REPORT INFORMATION
  Report Type: Spontaneous
  Country: US (occurrence: US)
  Receive Date: 20240829
  Receipt Date: 20240829
  Transmission Date: 20241017
  Serious: Yes (Other)
  Sender: JOHNSON AND JOHNSON
  Company Number: US-JNJFOC-20240859711

PATIENT
  Sex: Female

DRUGS (2)
  1. SPRAVATO [Interacting]
     Active Substance: ESKETAMINE
     Indication: Product used for unknown indication
  2. SPRAVATO [Interacting]
     Active Substance: ESKETAMINE
     Dates: start: 20240821

REACTIONS (2)
  - Anaphylactic reaction [Unknown]
  - Drug interaction [Unknown]

NARRATIVE: CASE EVENT DATE: 20240821
